FAERS Safety Report 10530614 (Version 2)
Quarter: 2014Q4

REPORT INFORMATION
  Report Type: Spontaneous
  Country: CZ (occurrence: CZ)
  Receive Date: 20141021
  Receipt Date: 20141218
  Transmission Date: 20150528
  Serious: Yes (Disabling, Other)
  Sender: FDA-Public Use
  Company Number: CZ-TEVA-515723ISR

PATIENT
  Age: 63 Year
  Sex: Male

DRUGS (2)
  1. PRAMIPEXOL 0.7 MG [Concomitant]
     Dosage: 4 TABLET DAILY;
     Route: 048
  2. L-DOPA/KARBIDOPA 250/25MG [Suspect]
     Active Substance: CARBIDOPA\LEVODOPA
     Indication: PARKINSON^S DISEASE
     Dosage: 7 TABLET DAILY;
     Route: 048
     Dates: end: 2009

REACTIONS (3)
  - On and off phenomenon [Recovered/Resolved]
  - Dyskinesia [Recovered/Resolved]
  - Dopamine dysregulation syndrome [Recovered/Resolved]

NARRATIVE: CASE EVENT DATE: 200404
